FAERS Safety Report 9703775 (Version 2)
Quarter: 2013Q4

REPORT INFORMATION
  Report Type: Spontaneous
  Country: JP (occurrence: JP)
  Receive Date: 20131122
  Receipt Date: 20131122
  Transmission Date: 20140711
  Serious: Yes (Other)
  Sender: FDA-Public Use
  Company Number: JP-ELI_LILLY_AND_COMPANY-JP201310002196

PATIENT
  Age: 63 Year
  Sex: Female

DRUGS (3)
  1. GEMZAR [Suspect]
     Indication: LYMPHOMA
     Dosage: 1200 MG, UNK
     Route: 042
  2. CARBOPLATIN [Suspect]
     Indication: LYMPHOMA
  3. DECADRON                           /00016001/ [Concomitant]
     Indication: LYMPHOMA
     Dosage: 40 MG, UNK

REACTIONS (1)
  - Infusion related reaction [Unknown]
